FAERS Safety Report 10844267 (Version 1)
Quarter: 2015Q1

REPORT INFORMATION
  Report Type: Spontaneous
  Country: US (occurrence: US)
  Receive Date: 20150220
  Receipt Date: 20150220
  Transmission Date: 20150721
  Serious: No
  Sender: FDA-Public Use
  Company Number: US-ASTRAZENECA-2015SE15020

PATIENT
  Age: 78 Year
  Sex: Female

DRUGS (1)
  1. NEXIUM 24HR [Suspect]
     Active Substance: ESOMEPRAZOLE MAGNESIUM
     Route: 048
     Dates: start: 20150207

REACTIONS (4)
  - Drug ineffective [Unknown]
  - Oesophageal spasm [Unknown]
  - Dyspepsia [Unknown]
  - Intentional product misuse [Unknown]
